FAERS Safety Report 4512068-2 (Version None)
Quarter: 2004Q4

REPORT INFORMATION
  Report Type: 
  Country: None (occurrence: None)
  Receive Date: 20041123
  Receipt Date: 20041115
  Transmission Date: 20050328
  Serious: Yes (Hospitalization)
  Sender: FDA-Public Use
  Company Number: HQWYE159428OCT04

PATIENT
  Age: 70 Year
  Sex: Female

DRUGS (13)
  1. ADVIL [Suspect]
     Indication: PAIN
     Dosage: ORAL
     Route: 048
  2. OXACILLIN [Suspect]
     Indication: INFECTION
     Dosage: 500MG, ORAL
     Route: 048
     Dates: start: 20040902, end: 20040917
  3. FLAMMAZINE (SULFADIAZINE SILVER, ) [Suspect]
     Indication: INFECTION
     Dosage: TOPICAL
     Route: 061
     Dates: start: 20040902, end: 20040917
  4. FUNGIOZINE (AMPHOTERICIN B) [Suspect]
     Indication: INFECTION
     Dosage: 250MG, ORAL
     Route: 048
     Dates: start: 20040902, end: 20040917
  5. RIFAMPICIN [Suspect]
     Indication: INFECTION
     Dosage: 300MG, ORAL
     Route: 048
     Dates: start: 20040902, end: 20040917
  6. SOLUPRED (PREDNISOLONE SODIUM SULFOBENZOATE, ) [Suspect]
     Indication: INFECTION
     Dosage: 20 MG, ORAL
     Route: 048
     Dates: start: 20040902, end: 20040917
  7. AMLODIPINE BESYLATE [Concomitant]
  8. SIMVASTATIN [Concomitant]
  9. ETHER, ANESTHETIC (ETHER, SOLVENT) [Concomitant]
  10. ALCOHOL (ETHANOL) [Concomitant]
  11. EOSINE (EOSINE) [Concomitant]
  12. NERISONE [Concomitant]
  13. TULLE GRAS LUMIERE (PERUVIAN BALSAM) [Concomitant]

REACTIONS (13)
  - ALANINE AMINOTRANSFERASE INCREASED [None]
  - ANAEMIA [None]
  - ASPARTATE AMINOTRANSFERASE INCREASED [None]
  - BACK PAIN [None]
  - DIALYSIS [None]
  - GAMMA-GLUTAMYLTRANSFERASE INCREASED [None]
  - HAEMATURIA [None]
  - INFLAMMATION [None]
  - LIVER DISORDER [None]
  - NEPHRITIS INTERSTITIAL [None]
  - PROTEINURIA [None]
  - RENAL FAILURE ACUTE [None]
  - THROMBOCYTOPENIA [None]
